FAERS Safety Report 11177369 (Version 1)
Quarter: 2015Q2

REPORT INFORMATION
  Report Type: Spontaneous
  Country: US (occurrence: None)
  Receive Date: 20150609
  Receipt Date: 20150609
  Transmission Date: 20150821
  Serious: No
  Sender: FDA-Public Use
  Company Number: None

PATIENT
  Age: 50 Year
  Sex: Female

DRUGS (11)
  1. INTERFERON BETA-1A (AVONEX) [Concomitant]
  2. FERROUS SULFATE [Concomitant]
     Active Substance: FERROUS SULFATE\FERROUS SULFATE, DRIED
  3. GABAPENTIN (NEURONTIN) [Concomitant]
  4. FAMOTIDINE (PEPCID) [Concomitant]
  5. VIT D2 (VITAMIN D2) [Concomitant]
  6. CHOLECALCIFEROL [Concomitant]
     Active Substance: CHOLECALCIFEROL
  7. VITAMIN D3 [Concomitant]
     Active Substance: CHOLECALCIFEROL
  8. CYANOCOBALAMIN (VITAMIN B-12) [Concomitant]
  9. LIORESAL [Concomitant]
     Active Substance: BACLOFEN
  10. ERGOCALCIFEROL. [Concomitant]
     Active Substance: ERGOCALCIFEROL
  11. AMPYRA [Suspect]
     Active Substance: DALFAMPRIDINE
     Indication: MULTIPLE SCLEROSIS
     Route: 048
     Dates: start: 201105

REACTIONS (1)
  - Mean cell haemoglobin concentration abnormal [None]

NARRATIVE: CASE EVENT DATE: 20150423
